FAERS Safety Report 10150041 (Version 1)
Quarter: 2014Q2

REPORT INFORMATION
  Report Type: Spontaneous
  Country: US (occurrence: None)
  Receive Date: 20140501
  Receipt Date: 20140501
  Transmission Date: 20141212
  Serious: Yes (Hospitalization)
  Sender: FDA-Public Use
  Company Number: None

PATIENT
  Age: 42 Year
  Sex: Male

DRUGS (9)
  1. MIRTAZAPINE [Suspect]
     Indication: DEPRESSION
     Route: 048
     Dates: start: 20131118, end: 20131118
  2. FENTANYL [Concomitant]
  3. ONDANSETRON [Concomitant]
  4. AMPICILLIN [Concomitant]
  5. DOCUSATE [Concomitant]
  6. FAMOTIDINE [Concomitant]
  7. LIDOCAINE [Concomitant]
  8. MIRTAZAPINE [Concomitant]
  9. DULOXETINE [Concomitant]

REACTIONS (6)
  - Depression [None]
  - Anxiety [None]
  - Micrognathia [None]
  - Agitation [None]
  - Clonus [None]
  - Tachycardia [None]
